FAERS Safety Report 8992039 (Version 1)
Quarter: 2012Q4

REPORT INFORMATION
  Report Type: 
  Country: US (occurrence: US)
  Receive Date: 20121231
  Receipt Date: 20121231
  Transmission Date: 20130627
  Serious: Yes (Hospitalization, Other)
  Sender: FDA-Public Use
  Company Number: US-JNJCP-30000133514

PATIENT
  Age: 51 Year
  Sex: Female

DRUGS (2)
  1. JOHNSON^S BABY PRODUCTS [Suspect]
     Indication: PRODUCT USED FOR UNKNOWN INDICATION
     Route: 061
  2. OC PILLS SINCE 20 YEARS [Concomitant]
     Indication: BIRTH CONTROL
     Dosage: since 20 years

REACTIONS (9)
  - Mesothelioma malignant [Unknown]
  - Nausea [None]
  - Decreased appetite [None]
  - Weight decreased [None]
  - Vomiting [None]
  - Diarrhoea [None]
  - Blood potassium decreased [None]
  - Blood magnesium decreased [None]
  - Haemoglobin decreased [None]
